FAERS Safety Report 9281844 (Version 1)
Quarter: 2013Q2

REPORT INFORMATION
  Report Type: Report from Study
  Country: US (occurrence: US)
  Receive Date: 20130510
  Receipt Date: 20130510
  Transmission Date: 20140414
  Serious: Yes (Hospitalization)
  Sender: FDA-Public Use
  Company Number: US-ROCHE-1223171

PATIENT
  Sex: Female
  Weight: 99.88 kg

DRUGS (4)
  1. XELODA [Suspect]
     Indication: COLON CANCER
     Dosage: 1000 MG AND 1500 MG
     Route: 048
     Dates: start: 20120901
  2. XELODA [Suspect]
     Dosage: FIRST DOSE ADJUSTMENT
     Route: 048
  3. XELODA [Suspect]
     Dosage: SECOND DOSE ADJUSTMENT
     Route: 048
  4. XELODA [Suspect]
     Dosage: THIRD DOSE ADJUSTMENT
     Route: 048
     Dates: end: 20130507

REACTIONS (4)
  - Colostomy closure [Unknown]
  - Pain in extremity [Not Recovered/Not Resolved]
  - Burning sensation [Recovered/Resolved]
  - Skin exfoliation [Recovered/Resolved]
